FAERS Safety Report 23851531 (Version 1)
Quarter: 2024Q2

REPORT INFORMATION
  Report Type: Report from Study
  Country: CA (occurrence: CA)
  Receive Date: 20240514
  Receipt Date: 20240514
  Transmission Date: 20240716
  Serious: Yes (Other)
  Sender: FDA-Public Use
  Company Number: CA-ABBVIE-5754448

PATIENT
  Age: 61 Year
  Sex: Female

DRUGS (2)
  1. SKYRIZI [Suspect]
     Active Substance: RISANKIZUMAB-RZAA
     Indication: Psoriasis
     Route: 058
     Dates: start: 20240208
  2. SKYRIZI [Suspect]
     Active Substance: RISANKIZUMAB-RZAA
     Dosage: FIRST AND LAST ADMIN DATE: 2024
     Route: 058

REACTIONS (4)
  - Dental implantation [Unknown]
  - Arthralgia [Not Recovered/Not Resolved]
  - Joint lock [Not Recovered/Not Resolved]
  - Gingivitis [Unknown]

NARRATIVE: CASE EVENT DATE: 20240101
